FAERS Safety Report 9607011 (Version 1)
Quarter: 2013Q4

REPORT INFORMATION
  Report Type: Report from Study
  Country: BE (occurrence: BE)
  Receive Date: 20131009
  Receipt Date: 20131009
  Transmission Date: 20140711
  Serious: Yes (Hospitalization)
  Sender: FDA-Public Use
  Company Number: BE-AMGEN-BELCT2013070116

PATIENT
  Age: 71 Year
  Sex: Female
  Weight: 45.3 kg

DRUGS (13)
  1. ETANERCEPT [Suspect]
     Indication: RHEUMATOID ARTHRITIS
     Dosage: 25 MG, 2 TIMES/WK
     Route: 058
     Dates: start: 20030213
  2. LEDERTREXATE                       /00113802/ [Concomitant]
     Indication: RHEUMATOID ARTHRITIS
     Dosage: 7.5 MG, QWK
     Route: 048
     Dates: start: 20040630
  3. SINTROM [Concomitant]
     Dosage: UNK
     Route: 048
  4. CORDARONE X [Concomitant]
     Dosage: UNK
     Route: 048
  5. LEXOTAN [Concomitant]
     Dosage: UNK
     Route: 048
  6. CALCIUM CARBONATE [Concomitant]
     Dosage: UNK
     Route: 048
  7. D-CURE [Concomitant]
     Dosage: UNK
     Route: 048
  8. DUROGESIC [Concomitant]
     Dosage: UNK
     Route: 062
  9. FOLIC ACID [Concomitant]
     Dosage: UNK, 1 CAPSULE EVERY DAY
     Route: 048
  10. TRINIPATCH [Concomitant]
     Dosage: UNK
     Route: 062
  11. NOVOTHYRAL [Concomitant]
     Dosage: UNK
     Route: 048
  12. MEDROL                             /00049601/ [Concomitant]
     Dosage: UNK
     Route: 048
  13. OMEPRAZOLE [Concomitant]
     Dosage: UNK
     Route: 048

REACTIONS (3)
  - Malnutrition [Recovered/Resolved]
  - Anaemia [Not Recovered/Not Resolved]
  - Leukopenia [Not Recovered/Not Resolved]
